FAERS Safety Report 24739404 (Version 1)
Quarter: 2024Q4

REPORT INFORMATION
  Report Type: Spontaneous
  Country: DE (occurrence: DE)
  Receive Date: 20241216
  Receipt Date: 20241216
  Transmission Date: 20250114
  Serious: Yes (Hospitalization)
  Sender: MYLAN
  Company Number: DE-LUNDBECK-DKLU4007560

PATIENT
  Age: 81 Year
  Sex: Female

DRUGS (1)
  1. CITALOPRAM [Suspect]
     Active Substance: CITALOPRAM
     Indication: Depression
     Dosage: 80 MILLIGRAM, QD,(OVERDOSE NOS: 2 X 40MG/DAY)
     Route: 065

REACTIONS (3)
  - Fall [Recovered/Resolved]
  - Inappropriate schedule of product administration [Unknown]
  - Overdose [Unknown]
